FAERS Safety Report 4555954-X (Version None)
Quarter: 2005Q1

REPORT INFORMATION
  Report Type: 
  Country: None (occurrence: None)
  Receive Date: 20050119
  Receipt Date: 20050105
  Transmission Date: 20050727
  Serious: Yes (Hospitalization)
  Sender: FDA-Public Use
  Company Number: BE-JNJFOC-20041203235

PATIENT
  Age: 49 Year
  Sex: Female

DRUGS (8)
  1. PROPULSID [Suspect]
     Indication: DIABETIC GASTROPARESIS
     Route: 049
     Dates: start: 20030128, end: 20041014
  2. AMLOR [Concomitant]
  3. ZESTRIL [Concomitant]
  4. ZOCOR [Concomitant]
  5. ASPIRIN [Concomitant]
  6. ACTRAPID [Concomitant]
     Dosage: 9E-11E
  7. NOVORAPID [Concomitant]
     Dosage: 8E
  8. LANTUS [Concomitant]
     Dosage: 19E

REACTIONS (3)
  - BUNDLE BRANCH BLOCK RIGHT [None]
  - ELECTROCARDIOGRAM REPOLARISATION ABNORMALITY [None]
  - VENTRICULAR TACHYCARDIA [None]
